FAERS Safety Report 9150620 (Version 1)
Quarter: 2013Q1

REPORT INFORMATION
  Report Type: Spontaneous
  Country: GB (occurrence: GB)
  Receive Date: 20130308
  Receipt Date: 20130308
  Transmission Date: 20140127
  Serious: Yes (Death)
  Sender: FDA-Public Use
  Company Number: GB-ABBOTT-13P-167-1059807-00

PATIENT
  Age: 48 Year
  Sex: Male
  Weight: 96 kg

DRUGS (3)
  1. HUMIRA [Suspect]
     Indication: PSORIASIS
     Dates: start: 20091230
  2. METHOTREXATE [Concomitant]
     Indication: PSORIASIS
     Dates: end: 20091230
  3. FOLIC ACID [Concomitant]
     Indication: PSORIASIS
     Dates: end: 20090930

REACTIONS (3)
  - Sudden death [Fatal]
  - Arteriosclerosis coronary artery [Fatal]
  - Myocardial ischaemia [Fatal]
